FAERS Safety Report 7048714-1 (Version None)
Quarter: 2010Q4

REPORT INFORMATION
  Report Type: 
  Country: None (occurrence: None)
  Receive Date: 20101018
  Receipt Date: 20101008
  Transmission Date: 20110411
  Serious: Yes (Hospitalization)
  Sender: FDA-Public Use
  Company Number: US-BIOGENIDEC-2010BI032634

PATIENT
  Sex: Female
  Weight: 47 kg

DRUGS (8)
  1. AVONEX [Suspect]
     Indication: MULTIPLE SCLEROSIS
     Route: 030
     Dates: start: 20030628
  2. CRESTOR [Concomitant]
     Indication: BLOOD CHOLESTEROL INCREASED
     Route: 048
  3. PLAQUENIL [Concomitant]
     Route: 048
  4. PROVIGIL [Concomitant]
     Indication: MULTIPLE SCLEROSIS
  5. FLEXERIL [Concomitant]
     Indication: MULTIPLE SCLEROSIS
     Route: 048
  6. AMBIEN CR (ZOLPIDEM, EXTENDED RELEASE) [Concomitant]
     Indication: MULTIPLE SCLEROSIS
     Route: 048
  7. VALIUM [Concomitant]
     Route: 048
  8. DARVOCET-N 100 [Concomitant]
     Indication: PAIN
     Route: 048

REACTIONS (2)
  - FOCAL SEGMENTAL GLOMERULOSCLEROSIS [None]
  - OEDEMA [None]
